FAERS Safety Report 9376472 (Version 2)
Quarter: 2013Q3

REPORT INFORMATION
  Report Type: Spontaneous
  Country: LT (occurrence: LT)
  Receive Date: 20130701
  Receipt Date: 20130812
  Transmission Date: 20140515
  Serious: Yes (Other)
  Sender: FDA-Public Use
  Company Number: LT-JNJFOC-20130612740

PATIENT
  Sex: Female

DRUGS (3)
  1. DOXORUBICIN [Suspect]
     Indication: BREAST CANCER METASTATIC
     Route: 042
  2. DOCETAXEL [Suspect]
     Indication: BREAST CANCER METASTATIC
     Route: 065
  3. GRANULOCYTE-COLONY STIMULATING FACTOR [Suspect]
     Indication: PROPHYLAXIS
     Dosage: ON DAY 2 OF EACH 21 DAY CHEMOTHERAPY
     Route: 058

REACTIONS (32)
  - Ischaemic stroke [Unknown]
  - Pericardial effusion [Unknown]
  - Leukocytosis [Unknown]
  - Neutropenia [Unknown]
  - Febrile neutropenia [Unknown]
  - Anaemia [Unknown]
  - Infection [Unknown]
  - Leukopenia [Unknown]
  - Lymphopenia [Unknown]
  - Thrombocytopenia [Unknown]
  - Bone pain [Unknown]
  - Asthenia [Unknown]
  - Malaise [Unknown]
  - Constipation [Unknown]
  - Cough [Unknown]
  - Headache [Unknown]
  - Pyrexia [Unknown]
  - Dyspepsia [Unknown]
  - Nausea [Unknown]
  - Alopecia [Unknown]
  - Dysgeusia [Unknown]
  - Blood alkaline phosphatase increased [Unknown]
  - Myalgia [Unknown]
  - Insomnia [Unknown]
  - Arthralgia [Unknown]
  - Rash [Unknown]
  - Musculoskeletal pain [Unknown]
  - Blood lactate dehydrogenase increased [Unknown]
  - Blood calcium decreased [Unknown]
  - Blood sodium decreased [Unknown]
  - Back pain [Unknown]
  - Dysuria [Unknown]
